FAERS Safety Report 6861349-6 (Version None)
Quarter: 2010Q3

REPORT INFORMATION
  Report Type: 
  Country: None (occurrence: None)
  Receive Date: 20100715
  Receipt Date: 20100702
  Transmission Date: 20110219
  Serious: Yes (Hospitalization)
  Sender: FDA-Public Use
  Company Number: BR-1182529

PATIENT
  Age: 87 Year
  Sex: Female

DRUGS (1)
  1. TROPICAMIDE (TROPICAMIDE) 1% OPTHALMIC SOLUTION EYE DROPS, SOLUTION [Suspect]
     Indication: GLAUCOMA
     Dosage: 2 GTT QID OPHTHALMIC
     Route: 047

REACTIONS (8)
  - AGITATION [None]
  - CEREBRAL MICROANGIOPATHY [None]
  - CONFUSIONAL STATE [None]
  - DELIRIUM [None]
  - DEPRESSED LEVEL OF CONSCIOUSNESS [None]
  - DISORIENTATION [None]
  - PSYCHOMOTOR HYPERACTIVITY [None]
  - PSYCHOTIC DISORDER [None]
